FAERS Safety Report 18411503 (Version 2)
Quarter: 2020Q4

REPORT INFORMATION
  Report Type: Report from Study
  Country: PL (occurrence: PL)
  Receive Date: 20201021
  Receipt Date: 20201029
  Transmission Date: 20210114
  Serious: Yes (Hospitalization)
  Sender: FDA-Public Use
  Company Number: PL-AMGEN-POLCT2020169623

PATIENT
  Age: 74 Year
  Sex: Male
  Weight: 74.2 kg

DRUGS (8)
  1. BISOCARD [Concomitant]
     Active Substance: BISOPROLOL
     Dosage: 10 MILLIGRAM
     Dates: start: 2009
  2. FINASTERIDUM [Concomitant]
     Dosage: 5 MILLIGRAM
     Dates: start: 20090514
  3. ATORVASTATINUM [Concomitant]
     Active Substance: ATORVASTATIN
     Indication: DYSLIPIDAEMIA
     Dosage: 20 MILLIGRAM
     Route: 065
     Dates: start: 20140214
  4. EVOLOCUMAB [Suspect]
     Active Substance: EVOLOCUMAB
     Indication: DYSLIPIDAEMIA
     Dosage: UNK
     Route: 058
     Dates: start: 20160902
  5. FOKUSIN [Concomitant]
     Active Substance: TAMSULOSIN
     Dosage: 0.4 MILLIGRAM
     Dates: start: 20090514
  6. ASPIRIN [ACETYLSALICYLIC ACID] [Concomitant]
     Active Substance: ASPIRIN
     Dosage: UNK
  7. POLOCARD [Concomitant]
     Active Substance: ASPIRIN
     Dosage: 150 MILLIGRAM
     Dates: start: 20140228
  8. TELMIZEK COMBI [Concomitant]
     Dosage: 1 UNK
     Dates: start: 20181113

REACTIONS (1)
  - Leriche syndrome [Recovered/Resolved]

NARRATIVE: CASE EVENT DATE: 20200706
